FAERS Safety Report 7634555-0 (Version None)
Quarter: 2011Q3

REPORT INFORMATION
  Report Type: 
  Country: None (occurrence: None)
  Receive Date: 20110725
  Receipt Date: 20110623
  Transmission Date: 20111222
  Serious: Yes (Other)
  Sender: FDA-Public Use
  Company Number: US-PFIZER INC-2011166904

PATIENT
  Sex: Female

DRUGS (1)
  1. CHANTIX [Suspect]
     Dosage: UNK

REACTIONS (9)
  - BLOOD POTASSIUM DECREASED [None]
  - VOMITING [None]
  - CARBON DIOXIDE DECREASED [None]
  - DRUG INEFFECTIVE [None]
  - DIZZINESS [None]
  - BLOOD SODIUM DECREASED [None]
  - INSOMNIA [None]
  - NIGHTMARE [None]
  - NAUSEA [None]
